FAERS Safety Report 21101932 (Version 3)
Quarter: 2023Q2

REPORT INFORMATION
  Report Type: Spontaneous
  Country: US (occurrence: US)
  Receive Date: 20220719
  Receipt Date: 20230606
  Transmission Date: 20230722
  Serious: Yes (Other)
  Sender: FDA-Public Use
  Company Number: US-PFIZER INC-PV202200023592

PATIENT
  Age: 64 Year
  Sex: Female

DRUGS (1)
  1. IBRANCE [Suspect]
     Active Substance: PALBOCICLIB
     Dosage: 125 MG

REACTIONS (4)
  - Blindness [Unknown]
  - Blood glucose decreased [Unknown]
  - Asthenia [Unknown]
  - Memory impairment [Unknown]

NARRATIVE: CASE EVENT DATE: 20220713
